FAERS Safety Report 4519408-9 (Version None)
Quarter: 2004Q4

REPORT INFORMATION
  Report Type: 
  Country: None (occurrence: None)
  Receive Date: 20041202
  Receipt Date: 20040922
  Transmission Date: 20050328
  Serious: Yes (Other)
  Sender: FDA-Public Use
  Company Number: 2004069740

PATIENT
  Age: 40 Year
  Sex: Female

DRUGS (1)
  1. TERRAMYCIN HCL [Suspect]
     Indication: ILL-DEFINED DISORDER
     Dosage: MORE THAN 10 YEARS AGO

REACTIONS (5)
  - EXOPHTHALMOS [None]
  - EYE DISORDER [None]
  - EYE OEDEMA [None]
  - MIOSIS [None]
  - SKIN NODULE [None]
